FAERS Safety Report 5496181-1 (Version None)
Quarter: 2007Q4

REPORT INFORMATION
  Report Type: 
  Country: None (occurrence: None)
  Receive Date: 20071018
  Receipt Date: 20070502
  Transmission Date: 20080405
  Serious: Yes (Other)
  Sender: FDA-Public Use
  Company Number: 2007035578

PATIENT
  Age: 61 Year
  Sex: Female

DRUGS (3)
  1. NEURONTIN [Suspect]
     Indication: ASTHENIA
  2. NEURONTIN [Suspect]
     Indication: MUSCLE DISORDER
  3. NEURONTIN [Suspect]
     Indication: NEUROPATHY

REACTIONS (5)
  - FATIGUE [None]
  - FEELING ABNORMAL [None]
  - HYPERTONIC BLADDER [None]
  - NEGATIVE THOUGHTS [None]
  - PALPITATIONS [None]
